FAERS Safety Report 6568179-3 (Version None)
Quarter: 2010Q1

REPORT INFORMATION
  Report Type: 
  Country: None (occurrence: None)
  Receive Date: 20100203
  Receipt Date: 20100126
  Transmission Date: 20100710
  Serious: Yes (Disabling)
  Sender: FDA-Public Use
  Company Number: JP-ROCHE-663209

PATIENT
  Sex: Male
  Weight: 60 kg

DRUGS (17)
  1. COPEGUS [Suspect]
     Indication: HEPATITIS C
     Dosage: NOTE: DIVIDED INTO 2 DOSES
     Route: 048
     Dates: start: 20090714, end: 20090901
  2. PEGASYS [Suspect]
     Indication: HEPATITIS C
     Route: 058
     Dates: start: 20090714, end: 20090908
  3. METHAPHYLLIN [Concomitant]
     Dosage: DRUG REPORTED AS: METHAPHYLLIN(PROPANTHELINE BROMIDE_CHLOROPHYLL COMBINED DRUG)
     Route: 048
     Dates: start: 20030322
  4. SUCRALFATE [Concomitant]
     Dosage: DRUG REPORTED AS: OHNESMIN(SUCRALFATE)
     Route: 048
     Dates: start: 20030322
  5. METOCLOPRAMIDE [Concomitant]
     Dosage: DRUG REPORTED AS: FOLICRON(METOCLOPRAMIDE)
     Route: 048
     Dates: start: 20030322
  6. ATENENTOIN [Concomitant]
     Route: 048
     Dates: start: 20030322
  7. URSO 250 [Concomitant]
     Dosage: DOSE FORM: ORAL FORMULATION (NOT OTHERWISE SPECIFIED)
     Route: 048
     Dates: start: 20030415
  8. VITADAN [Concomitant]
     Dosage: DRUG REPORTED AS: VITADAN(FURSULTIAMINE_B2_B6_B12 COMBINED DRUG)
     Route: 048
     Dates: start: 20040630
  9. RANITIDINE HYDROCHLORIDE [Concomitant]
     Route: 048
     Dates: start: 20040721
  10. EPINASTINE HYDROCHLORIDE [Concomitant]
     Dosage: DRUG REPORTED AS: TIMKENT(EPINASTINE HYDROCHLORIDE)
     Route: 048
     Dates: start: 20040921
  11. ASPIRIN [Concomitant]
     Route: 048
     Dates: start: 20041224, end: 20090712
  12. CLARUTE [Concomitant]
     Dosage: DRUG REPORTED AS: CLARUTE R(DILTIAZEM HYDROCHLORIDE)
     Route: 048
     Dates: start: 20050121
  13. NICORANDIL [Concomitant]
     Dosage: DRUG REPORTED AS: NIKORANMART(NICORANDIL)
     Route: 048
     Dates: start: 20050416
  14. CORINAEL [Concomitant]
     Route: 048
     Dates: start: 20050531
  15. IFENPRODIL TARTRATE [Concomitant]
     Dosage: DRUG REPORTED AS: IBURONOL(IFENPRODIL TARTRATE
     Route: 048
     Dates: start: 20080711
  16. SENNOSIDE [Concomitant]
     Dosage: DRUG REPORTED AS: SOLDOL(SENNOSIDE)
     Route: 048
  17. MYSLEE [Concomitant]
     Dosage: DRUG REPORTED AS: MYSLEE(ZOLPIDEM TARTRATE)
     Route: 048

REACTIONS (1)
  - PULMONARY FIBROSIS [None]
